FAERS Safety Report 9118754 (Version 2)
Quarter: 2013Q2

REPORT INFORMATION
  Report Type: Report from Study
  Country: FR (occurrence: FR)
  Receive Date: 20130226
  Receipt Date: 20130513
  Transmission Date: 20140414
  Serious: Yes (Other)
  Sender: FDA-Public Use
  Company Number: FR-BIOGENIDEC-2013BI016622

PATIENT
  Age: 44 Year
  Sex: Female

DRUGS (10)
  1. TYSABRI [Suspect]
     Indication: MULTIPLE SCLEROSIS
     Route: 042
     Dates: start: 20081003
  2. SOLUMEDROL [Concomitant]
     Indication: MULTIPLE SCLEROSIS
     Route: 042
     Dates: start: 20120521, end: 20120525
  3. 3,4-DIAMINOPYRIDINE [Concomitant]
     Indication: FATIGUE
     Route: 048
     Dates: start: 200405
  4. MAGNE B6 [Concomitant]
     Route: 048
     Dates: start: 200207
  5. OMEPRAZOLE [Concomitant]
     Indication: ANTACID THERAPY
     Route: 048
     Dates: start: 200205
  6. CLONAZEPAM [Concomitant]
     Indication: PAIN IN EXTREMITY
     Route: 048
     Dates: start: 200910
  7. PARACETAMOL [Concomitant]
     Indication: HEADACHE
     Dates: start: 201005
  8. CERIS [Concomitant]
     Indication: URINARY INCONTINENCE
     Dates: start: 200605
  9. MYOLASTAN [Concomitant]
     Indication: MUSCLE SPASTICITY
     Route: 048
     Dates: start: 20120511
  10. HEXAQUINE [Concomitant]
     Indication: MUSCLE SPASMS
     Route: 048
     Dates: start: 201203

REACTIONS (1)
  - Herpes zoster [Recovered/Resolved]
